FAERS Safety Report 16290349 (Version 2)
Quarter: 2019Q2

REPORT INFORMATION
  Report Type: Spontaneous
  Country: VN (occurrence: VN)
  Receive Date: 20190509
  Receipt Date: 20190531
  Transmission Date: 20190711
  Serious: Yes (Other)
  Sender: FDA-Public Use
  Company Number: VN-ROCHE-2313405

PATIENT
  Age: 53 Year
  Sex: Male

DRUGS (13)
  1. AVASTIN [Suspect]
     Active Substance: BEVACIZUMAB
     Indication: COLON CANCER
     Route: 065
  2. FOLINIC ACID [Suspect]
     Active Substance: LEUCOVORIN
     Indication: METASTASES TO PERITONEUM
  3. FLUOROURACIL. [Suspect]
     Active Substance: FLUOROURACIL
     Indication: COLON CANCER
     Route: 065
  4. XELODA [Concomitant]
     Active Substance: CAPECITABINE
     Route: 048
  5. IRINOTECAN [Suspect]
     Active Substance: IRINOTECAN
     Indication: METASTASES TO ABDOMINAL CAVITY
  6. AVASTIN [Suspect]
     Active Substance: BEVACIZUMAB
     Indication: METASTASES TO PERITONEUM
  7. FLUOROURACIL. [Suspect]
     Active Substance: FLUOROURACIL
     Indication: METASTASES TO ABDOMINAL CAVITY
  8. IRINOTECAN [Suspect]
     Active Substance: IRINOTECAN
     Indication: COLON CANCER
     Route: 065
  9. FLUOROURACIL. [Suspect]
     Active Substance: FLUOROURACIL
     Indication: METASTASES TO PERITONEUM
     Route: 042
     Dates: start: 201804, end: 20181130
  10. IRINOTECAN [Suspect]
     Active Substance: IRINOTECAN
     Indication: METASTASES TO PERITONEUM
     Route: 042
     Dates: start: 201804, end: 20181130
  11. AVASTIN [Suspect]
     Active Substance: BEVACIZUMAB
     Indication: METASTASES TO ABDOMINAL CAVITY
     Route: 042
     Dates: start: 201804, end: 20181130
  12. FOLINIC ACID [Suspect]
     Active Substance: LEUCOVORIN
     Indication: COLON CANCER
     Route: 065
  13. FOLINIC ACID [Suspect]
     Active Substance: LEUCOVORIN
     Indication: METASTASES TO ABDOMINAL CAVITY
     Route: 042
     Dates: start: 201804, end: 20181130

REACTIONS (1)
  - Muscle abscess [Recovered/Resolved]

NARRATIVE: CASE EVENT DATE: 20180730
